FAERS Safety Report 19746246 (Version 2)
Quarter: 2021Q4

REPORT INFORMATION
  Report Type: Spontaneous
  Country: CA (occurrence: CA)
  Receive Date: 20210825
  Receipt Date: 20211227
  Transmission Date: 20220303
  Serious: Yes (Hospitalization, Other)
  Sender: FDA-Public Use
  Company Number: CA-TAKEDA-2021TUS051961

PATIENT
  Age: 64 Year
  Sex: Female
  Weight: 59 kg

DRUGS (1)
  1. VON WILLEBRAND FACTOR HUMAN [Suspect]
     Active Substance: VON WILLEBRAND FACTOR HUMAN
     Indication: Von Willebrand^s disease
     Dosage: 1048 INTERNATIONAL UNIT
     Route: 042
     Dates: start: 20210121

REACTIONS (13)
  - Blood test abnormal [Unknown]
  - Haemoglobin decreased [Unknown]
  - Aphonia [Unknown]
  - Dysphonia [Unknown]
  - Fatigue [Unknown]
  - Increased bronchial secretion [Unknown]
  - Infusion site haemorrhage [Unknown]
  - Infusion site injury [Unknown]
  - Pain in extremity [Recovered/Resolved]
  - Poor venous access [Unknown]
  - Vein disorder [Unknown]
  - Dyspnoea [Unknown]
  - Drug hypersensitivity [Unknown]

NARRATIVE: CASE EVENT DATE: 20210225
